FAERS Safety Report 16628973 (Version 3)
Quarter: 2020Q3

REPORT INFORMATION
  Report Type: Spontaneous
  Country: CA (occurrence: CA)
  Receive Date: 20190725
  Receipt Date: 20200813
  Transmission Date: 20201102
  Serious: Yes (Death, Other)
  Sender: FDA-Public Use
  Company Number: CA-PFIZER INC-2019317737

PATIENT
  Age: 69 Year
  Sex: Male

DRUGS (1)
  1. BOSULIF [Suspect]
     Active Substance: BOSUTINIB MONOHYDRATE
     Indication: CHRONIC MYELOID LEUKAEMIA
     Dosage: 400 MG, DAILY
     Route: 048
     Dates: start: 20190411, end: 20190704

REACTIONS (6)
  - Dyspnoea exertional [Unknown]
  - Weight decreased [Unknown]
  - Death [Fatal]
  - Delirium [Unknown]
  - Asthenia [Unknown]
  - Respiratory failure [Unknown]

NARRATIVE: CASE EVENT DATE: 2019
